FAERS Safety Report 9012943 (Version 2)
Quarter: 2013Q4

REPORT INFORMATION
  Report Type: Spontaneous
  Country: US (occurrence: US)
  Receive Date: 20130114
  Receipt Date: 20131024
  Transmission Date: 20140711
  Serious: Yes (Hospitalization)
  Sender: FDA-Public Use
  Company Number: US-GLAXOSMITHKLINE-A1007674A

PATIENT
  Age: 72 Year
  Sex: Female

DRUGS (5)
  1. ADVAIR [Suspect]
     Indication: ASTHMA
     Dosage: 1PUFF TWICE PER DAY
     Route: 055
  2. ZOCOR [Concomitant]
  3. VITAMINS [Concomitant]
  4. CALCIUM [Concomitant]
  5. SINGULAIR [Concomitant]

REACTIONS (6)
  - Candida infection [Recovered/Resolved]
  - Pneumonia [Recovered/Resolved]
  - Wheezing [Recovered/Resolved]
  - Oral candidiasis [Recovered/Resolved]
  - Asthma [Recovered/Resolved]
  - Bronchitis [Recovered/Resolved]
